FAERS Safety Report 5138036-8 (Version None)
Quarter: 2006Q4

REPORT INFORMATION
  Report Type: 
  Country: None (occurrence: None)
  Receive Date: 20061030
  Receipt Date: 20060329
  Transmission Date: 20070319
  Serious: No
  Sender: FDA-Public Use
  Company Number: US-GLAXOSMITHKLINE-A0600611A

PATIENT
  Age: 81 Year
  Sex: Female

DRUGS (4)
  1. ADVAIR DISKUS 100/50 [Suspect]
     Indication: ASTHMA
     Route: 055
     Dates: start: 20040101, end: 20060310
  2. FLOVENT [Concomitant]
     Indication: ASTHMA
     Route: 055
     Dates: start: 20000101
  3. SEREVENT [Concomitant]
     Indication: ASTHMA
     Route: 055
     Dates: start: 20000101
  4. ALBUTEROL [Concomitant]
     Indication: ASTHMA
     Dosage: 4PUFF PER DAY
     Route: 055
     Dates: start: 20060310

REACTIONS (8)
  - APHONIA [None]
  - COUGH [None]
  - DYSPHONIA [None]
  - DYSPNOEA [None]
  - INSOMNIA [None]
  - LARYNGITIS [None]
  - PAINFUL RESPIRATION [None]
  - PHARYNGOLARYNGEAL PAIN [None]
